FAERS Safety Report 16668488 (Version 1)
Quarter: 2019Q3

REPORT INFORMATION
  Report Type: Spontaneous
  Country: US (occurrence: US)
  Receive Date: 20190619
  Receipt Date: 20190619
  Transmission Date: 20191004
  Serious: Yes (Other)
  Sender: FDA-Public Use
  Company Number: None

PATIENT
  Age: 73 Year
  Sex: Female
  Weight: 61.23 kg

DRUGS (15)
  1. EMULSIFIED DROPS BIO-D MULSION FORTE [Concomitant]
  2. OMEGA FISH OIL [Concomitant]
     Active Substance: FISH OIL\OMEGA-3 FATTY ACIDS
  3. PAROXETINE HCL 20 MG TABLET [Suspect]
     Active Substance: PAROXETINE HYDROCHLORIDE
     Indication: DEPRESSION
     Dosage: ?          QUANTITY:1 DF DOSAGE FORM;?
     Route: 048
     Dates: start: 20190607, end: 20190609
  4. EFANOL EVENING PRIM ROSE OIL [Concomitant]
  5. FENTANYL TRANSDERMAL SYSTEM [Concomitant]
     Active Substance: FENTANYL
  6. MS CONTIN [Concomitant]
     Active Substance: MORPHINE SULFATE
  7. OMEPRAZOLE. [Concomitant]
     Active Substance: OMEPRAZOLE
  8. ADVIL [Concomitant]
     Active Substance: IBUPROFEN
  9. ONDANSETRON [Concomitant]
     Active Substance: ONDANSETRON
  10. SENNA [Concomitant]
     Active Substance: SENNA LEAF\SENNOSIDES\SENNOSIDES A AND B
  11. PAROXETINE HCL 20 MG TABLET [Suspect]
     Active Substance: PAROXETINE HYDROCHLORIDE
     Indication: SLEEP DISORDER
     Dosage: ?          QUANTITY:1 DF DOSAGE FORM;?
     Route: 048
     Dates: start: 20190607, end: 20190609
  12. VITAMIN D [Concomitant]
     Active Substance: VITAMIN D NOS
  13. LORAZEPAM. [Concomitant]
     Active Substance: LORAZEPAM
  14. OSTEO B PLUS MULTI VITMIN [Concomitant]
  15. VITAMIN K2 WITH MEGA Q 7 [Concomitant]

REACTIONS (1)
  - Urinary retention [None]

NARRATIVE: CASE EVENT DATE: 20190608
